FAERS Safety Report 9443943 (Version 1)
Quarter: 2013Q3

REPORT INFORMATION
  Report Type: Spontaneous
  Country: FR (occurrence: FR)
  Receive Date: 20130807
  Receipt Date: 20130807
  Transmission Date: 20140515
  Serious: Yes (Death)
  Sender: FDA-Public Use
  Company Number: FR-ROCHE-1258145

PATIENT
  Age: 35 Year
  Sex: Female

DRUGS (1)
  1. ZELBORAF [Suspect]
     Indication: NEOPLASM MALIGNANT
     Route: 065
     Dates: start: 201112

REACTIONS (1)
  - Disease progression [Fatal]
